FAERS Safety Report 9478171 (Version 1)
Quarter: 2013Q3

REPORT INFORMATION
  Report Type: Spontaneous
  Country: GB (occurrence: GB)
  Receive Date: 20130827
  Receipt Date: 20130827
  Transmission Date: 20140515
  Serious: Yes (Other)
  Sender: FDA-Public Use
  Company Number: GB-PFIZER INC-2013243419

PATIENT
  Age: 20 Year
  Sex: Female
  Weight: 55 kg

DRUGS (1)
  1. CHAMPIX [Suspect]
     Indication: SMOKING CESSATION THERAPY
     Dosage: 1 MG, 2X/DAY
     Route: 048
     Dates: start: 20130722, end: 20130812

REACTIONS (6)
  - Suicidal ideation [Recovering/Resolving]
  - Depressed mood [Recovering/Resolving]
  - Aggression [Not Recovered/Not Resolved]
  - Anxiety [Not Recovered/Not Resolved]
  - Persecutory delusion [Recovered/Resolved with Sequelae]
  - Loss of libido [Not Recovered/Not Resolved]
